FAERS Safety Report 4428076-6 (Version None)
Quarter: 2004Q3

REPORT INFORMATION
  Report Type: 
  Country: None (occurrence: None)
  Receive Date: 20040813
  Receipt Date: 20040804
  Transmission Date: 20050211
  Serious: Yes (Other)
  Sender: FDA-Public Use
  Company Number: US-SHR-03-010901

PATIENT
  Age: 55 Year
  Sex: Female
  Weight: 104.3 kg

DRUGS (7)
  1. BETASERON [Suspect]
     Indication: MULTIPLE SCLEROSIS
     Dosage: 8 MIU, 3X/WEEK, SUBCUTANEOUS
     Route: 058
     Dates: start: 20020901, end: 20030501
  2. BACLOFEN [Concomitant]
  3. GABAPENTIN [Concomitant]
  4. FLUOXETINE [Concomitant]
  5. LEVOTHYROXINE SODIUM [Concomitant]
  6. AMITRIPTYLINE HCL [Concomitant]
  7. RETINOL [Concomitant]

REACTIONS (4)
  - CHEST PAIN [None]
  - DYSPNOEA [None]
  - PERICARDIAL EFFUSION [None]
  - PLEURAL EFFUSION [None]
